FAERS Safety Report 5734371-0 (Version None)
Quarter: 2008Q2

REPORT INFORMATION
  Report Type: 
  Country: None (occurrence: None)
  Receive Date: 20080512
  Receipt Date: 20080502
  Transmission Date: 20081010
  Serious: Yes (Disabling)
  Sender: FDA-Public Use
  Company Number: GB-TEVA-171085ISR

PATIENT
  Age: 79 Year
  Sex: Female

DRUGS (2)
  1. VERAPAMIL [Suspect]
     Indication: HYPERTENSION
     Route: 048
     Dates: start: 19980101, end: 20060101
  2. INDAPAMIDE [Suspect]
     Dates: start: 19910101, end: 20060101

REACTIONS (1)
  - AXONAL NEUROPATHY [None]
